FAERS Safety Report 7882307-9 (Version None)
Quarter: 2011Q4

REPORT INFORMATION
  Report Type: 
  Country: None (occurrence: None)
  Receive Date: 20111101
  Receipt Date: 20110613
  Transmission Date: 20120403
  Serious: No
  Sender: FDA-Public Use
  Company Number: US-AMGEN-USASP2011030259

PATIENT
  Age: 48 Year
  Sex: Female
  Weight: 72 kg

DRUGS (5)
  1. METHOTREXATE [Concomitant]
     Dosage: 2.5 MG, UNK
  2. ENBREL [Suspect]
     Indication: PRODUCT USED FOR UNKNOWN INDICATION
     Dosage: 50 MG, QWK
     Route: 058
  3. DIAZEPAM [Concomitant]
     Dosage: 2 MG, UNK
  4. CELEBREX [Concomitant]
     Dosage: 100 MG, UNK
  5. MULTI-VITAMIN [Concomitant]
     Dosage: UNK

REACTIONS (3)
  - INJECTION SITE PRURITUS [None]
  - INJECTION SITE INFLAMMATION [None]
  - INJECTION SITE ERYTHEMA [None]
